FAERS Safety Report 18695405 (Version 1)
Quarter: 2021Q1

REPORT INFORMATION
  Report Type: Report from Study
  Country: AR (occurrence: AR)
  Receive Date: 20210104
  Receipt Date: 20210104
  Transmission Date: 20210419
  Serious: Yes (Disabling)
  Sender: FDA-Public Use
  Company Number: NVSC2020AR347224

PATIENT
  Sex: Female

DRUGS (1)
  1. EXFORGE [Suspect]
     Active Substance: AMLODIPINE BESYLATE\VALSARTAN
     Indication: CARDIAC DISORDER
     Dosage: 10/160 X 28 TABLETS
     Route: 065

REACTIONS (4)
  - Inappropriate schedule of product administration [Unknown]
  - Nervousness [Unknown]
  - Accident [Unknown]
  - Blood pressure abnormal [Unknown]
